FAERS Safety Report 4662900-7 (Version None)
Quarter: 2005Q2

REPORT INFORMATION
  Report Type: 
  Country: None (occurrence: None)
  Receive Date: 20050502
  Receipt Date: 20050215
  Transmission Date: 20051028
  Serious: No
  Sender: FDA-Public Use
  Company Number: 200511208US

PATIENT
  Sex: Female

DRUGS (2)
  1. KETEK [Suspect]
     Indication: BRONCHIAL INFECTION
     Dosage: 800 MG QD PO
     Route: 048
  2. DECONGESTANTS [Concomitant]

REACTIONS (2)
  - TUNNEL VISION [None]
  - VISUAL ACUITY REDUCED [None]
